FAERS Safety Report 7132322-8 (Version None)
Quarter: 2010Q4

REPORT INFORMATION
  Report Type: 
  Country: None (occurrence: None)
  Receive Date: 20101130
  Receipt Date: 20101130
  Transmission Date: 20110411
  Serious: Yes (Life-Threatening)
  Sender: FDA-Public Use
  Company Number: None

PATIENT
  Age: 32 Year
  Sex: Male
  Weight: 108.8633 kg

DRUGS (1)
  1. PROPOXYPHENE HCL AND ACETAMINOPHEN [Suspect]
     Indication: TOOTHACHE
     Dosage: 1 TO 2 4 TO 6 HOURS PO (DAILY)
     Route: 048
     Dates: start: 20101115, end: 20101123

REACTIONS (3)
  - DIZZINESS [None]
  - DYSPNOEA [None]
  - POOR QUALITY DRUG ADMINISTERED [None]
